FAERS Safety Report 7524938-1 (Version None)
Quarter: 2011Q2

REPORT INFORMATION
  Report Type: 
  Country: None (occurrence: None)
  Receive Date: 20110606
  Receipt Date: 20110524
  Transmission Date: 20111010
  Serious: Yes (Hospitalization, Disabling, Other)
  Sender: FDA-Public Use
  Company Number: US-ELI_LILLY_AND_COMPANY-US201105007640

PATIENT
  Age: 60 Year
  Sex: Female

DRUGS (23)
  1. ZYPREXA [Suspect]
     Indication: BIPOLAR DISORDER
     Dosage: 10 MG, QD
     Dates: end: 20100101
  2. ZYPREXA [Suspect]
     Dosage: 10 MG, QD
     Dates: start: 20110520
  3. POTASSIUM CHLORIDE [Concomitant]
  4. ZYPREXA [Suspect]
     Dosage: 10 MG, QD
     Dates: start: 20100801
  5. ETODOLAC [Concomitant]
     Indication: ARTHRITIS
  6. GLUCOTROL XL [Concomitant]
  7. OMEPRAZOLE [Concomitant]
     Dosage: 1 DF, BID
  8. ACETAMINOPHEN AND HYDROCODONE BITARTRATE [Concomitant]
     Indication: PAIN
     Dosage: UNK, PRN
  9. IBUPROFEN [Concomitant]
     Dosage: 800 MG, UNK
  10. HUMULIN N [Concomitant]
  11. ALBUTEROL SULFATE AND IPRATROPIUM BROMIDE [Concomitant]
     Route: 055
  12. ADVAIR DISKUS 100/50 [Concomitant]
     Dosage: UNK, PRN
  13. KLONOPIN [Concomitant]
  14. METFORMIN HCL [Concomitant]
  15. ASPIRIN [Concomitant]
     Dosage: 81 MG, QD
  16. MULTI-VITAMIN [Concomitant]
     Indication: DIABETES MELLITUS
  17. OXYGEN [Concomitant]
     Dosage: UNK UNK, PRN
  18. LASIX [Concomitant]
  19. CIPROFLOXACIN [Concomitant]
     Indication: LUNG INFECTION
  20. GLUCOSAMINE CHONDROITIN [Concomitant]
  21. NOVOLOG [Concomitant]
  22. NEURONTIN [Concomitant]
     Indication: AFFECTIVE DISORDER
  23. PRAVASTATIN [Concomitant]

REACTIONS (13)
  - ALLERGY TO CHEMICALS [None]
  - INTENTIONAL DRUG MISUSE [None]
  - MALAISE [None]
  - OXYGEN SATURATION DECREASED [None]
  - DEPRESSION [None]
  - DEMENTIA [None]
  - PAIN [None]
  - DISTURBANCE IN ATTENTION [None]
  - CHEST DISCOMFORT [None]
  - FLUID RETENTION [None]
  - BLOOD GLUCOSE INCREASED [None]
  - ADVERSE EVENT [None]
  - WEIGHT INCREASED [None]
